FAERS Safety Report 5671893-5 (Version None)
Quarter: 2008Q1

REPORT INFORMATION
  Report Type: 
  Country: None (occurrence: None)
  Receive Date: 20080317
  Receipt Date: 20080317
  Transmission Date: 20080703
  Serious: Yes (Disabling, Other)
  Sender: FDA-Public Use
  Company Number: None

PATIENT
  Age: 47 Year
  Sex: Male
  Weight: 78.9259 kg

DRUGS (1)
  1. TUSSI-12D OBLONG PINK WALLACE [Suspect]
     Indication: COUGH
     Dosage: 1-2 TABLETS EVERY 12 HOURS PO
     Route: 048
     Dates: start: 20080220, end: 20080222

REACTIONS (2)
  - DIZZINESS [None]
  - IMPAIRED WORK ABILITY [None]
